FAERS Safety Report 11865837 (Version 3)
Quarter: 2016Q1

REPORT INFORMATION
  Report Type: Report from Study
  Country: DE (occurrence: TW)
  Receive Date: 20151223
  Receipt Date: 20160106
  Transmission Date: 20160526
  Serious: Yes (Hospitalization, Other)
  Sender: FDA-Public Use
  Company Number: DE-ACTELION-A-NJ2015-129154

PATIENT
  Age: 73 Year
  Sex: Female

DRUGS (1)
  1. VENTAVIS [Suspect]
     Active Substance: ILOPROST
     Indication: PULMONARY ARTERIAL HYPERTENSION
     Dosage: UNK
     Route: 055
     Dates: start: 201504

REACTIONS (3)
  - Ammonia increased [Recovered/Resolved]
  - Hypersomnia [Unknown]
  - Loss of consciousness [Not Recovered/Not Resolved]

NARRATIVE: CASE EVENT DATE: 20151201
